FAERS Safety Report 10586329 (Version 1)
Quarter: 2014Q4

REPORT INFORMATION
  Report Type: Spontaneous
  Country: SI (occurrence: SI)
  Receive Date: 20141117
  Receipt Date: 20141117
  Transmission Date: 20150529
  Serious: Yes (Other)
  Sender: FDA-Public Use
  Company Number: SI-AMGEN-SVNSP2014087499

PATIENT
  Age: 62 Year
  Sex: Female

DRUGS (4)
  1. XGEVA [Suspect]
     Active Substance: DENOSUMAB
     Indication: INFLAMMATORY CARCINOMA OF THE BREAST
     Dosage: 120 MG, UNK
     Route: 058
     Dates: start: 20131220, end: 20140220
  2. ANTHRACYCLINE [Concomitant]
     Active Substance: UNSPECIFIED INGREDIENT
     Indication: CHEMOTHERAPY
  3. LENIZOL [Concomitant]
  4. CALCIUM VITAMIN D3 [Concomitant]

REACTIONS (1)
  - Osteonecrosis of jaw [Unknown]

NARRATIVE: CASE EVENT DATE: 20140220
